FAERS Safety Report 9250335 (Version 1)
Quarter: 2013Q1

REPORT INFORMATION
  Report Type: Spontaneous
  Country: US (occurrence: None)
  Receive Date: 20121114
  Receipt Date: 20121114
  Transmission Date: 20140127
  Serious: Yes (Hospitalization)
  Sender: FDA-Public Use
  Company Number: A-US2012-60333

PATIENT
  Age: 37 Year
  Sex: Male

DRUGS (2)
  1. VENTAVIS [Suspect]
     Indication: PULMONARY ARTERIAL HYPERTENSION
     Dosage: UNK, RESPIRATORY
     Dates: start: 20080822, end: 201201
  2. ADCIRCA (TADALAFIL) [Concomitant]

REACTIONS (2)
  - Pulmonary arterial hypertension [None]
  - Pulmonary arterial pressure increased [None]
